FAERS Safety Report 23961086 (Version 4)
Quarter: 2025Q1

REPORT INFORMATION
  Report Type: Spontaneous
  Country: US (occurrence: US)
  Receive Date: 20240611
  Receipt Date: 20250326
  Transmission Date: 20250409
  Serious: No
  Sender: SANOFI AVENTIS
  Company Number: US-SA-2024SA172794

PATIENT
  Age: 55 Year
  Sex: Female

DRUGS (2)
  1. KEVZARA [Suspect]
     Active Substance: SARILUMAB
     Indication: Rheumatoid arthritis
     Dosage: 150 MG, QOW
     Route: 058
     Dates: start: 202405, end: 2024
  2. KEVZARA [Suspect]
     Active Substance: SARILUMAB
     Indication: Fibromyalgia
     Dosage: 150 MG, QOW
     Route: 058
     Dates: start: 202412

REACTIONS (5)
  - Illness [Unknown]
  - Fatigue [Unknown]
  - Chest pain [Unknown]
  - Nasopharyngitis [Unknown]
  - Product use in unapproved indication [Unknown]

NARRATIVE: CASE EVENT DATE: 20240101
